FAERS Safety Report 13636070 (Version 1)
Quarter: 2017Q2

REPORT INFORMATION
  Report Type: Spontaneous
  Country: US (occurrence: US)
  Receive Date: 20170531
  Receipt Date: 20170531
  Transmission Date: 20170830
  Serious: No
  Sender: FDA-Public Use
  Company Number: US-ASTELLAS-1776868

PATIENT
  Sex: Female

DRUGS (5)
  1. XANAX [Concomitant]
     Active Substance: ALPRAZOLAM
  2. LOVENOX [Concomitant]
     Active Substance: ENOXAPARIN SODIUM
  3. TARCEVA [Suspect]
     Active Substance: ERLOTINIB HYDROCHLORIDE
     Indication: LUNG NEOPLASM MALIGNANT
     Route: 048
     Dates: start: 20140321
  4. AMBIEN [Concomitant]
     Active Substance: ZOLPIDEM TARTRATE
  5. REMERON [Concomitant]
     Active Substance: MIRTAZAPINE

REACTIONS (1)
  - Diarrhoea [Not Recovered/Not Resolved]
